FAERS Safety Report 15477188 (Version 1)
Quarter: 2018Q4

REPORT INFORMATION
  Report Type: Spontaneous
  Country: US (occurrence: US)
  Receive Date: 20181002
  Receipt Date: 20181002
  Transmission Date: 20190205
  Serious: Yes (Hospitalization)
  Sender: FDA-Public Use
  Company Number: None

PATIENT
  Age: 67 Year
  Sex: Male

DRUGS (13)
  1. METOLAZONE. [Concomitant]
     Active Substance: METOLAZONE
  2. POLYETH GLYCOL [Concomitant]
  3. CLOPIDOGREL [Concomitant]
     Active Substance: CLOPIDOGREL BISULFATE
  4. ORKAMBI [Concomitant]
     Active Substance: IVACAFTOR\LUMACAFTOR
  5. SILDENAFIL. [Suspect]
     Active Substance: SILDENAFIL
     Indication: PULMONARY ARTERIAL HYPERTENSION
     Route: 048
  6. ALPHAGAN P [Concomitant]
     Active Substance: BRIMONIDINE TARTRATE
  7. SPIRONACTOLONE [Concomitant]
  8. POT CL MICRO [Concomitant]
  9. TAMSULOSIN [Concomitant]
     Active Substance: TAMSULOSIN
  10. WARFARIN [Concomitant]
     Active Substance: WARFARIN
  11. ALLOPURINOL. [Concomitant]
     Active Substance: ALLOPURINOL
  12. ATORVASTATIN [Concomitant]
     Active Substance: ATORVASTATIN
  13. FUROSEMIDE. [Concomitant]
     Active Substance: FUROSEMIDE

REACTIONS (1)
  - Product dose omission [None]

NARRATIVE: CASE EVENT DATE: 20180901
